FAERS Safety Report 19758223 (Version 1)
Quarter: 2021Q3

REPORT INFORMATION
  Report Type: Spontaneous
  Country: TH (occurrence: TH)
  Receive Date: 20210827
  Receipt Date: 20210827
  Transmission Date: 20211014
  Serious: Yes (Other)
  Sender: FDA-Public Use
  Company Number: TH-BAYER-2021-198672

PATIENT
  Age: 82 Year
  Sex: Male

DRUGS (1)
  1. STIVARGA [Suspect]
     Active Substance: REGORAFENIB
     Indication: COLON CANCER METASTATIC
     Dosage: 160 MG DAILY 3 WEEKS ON 1 WEEK OFF

REACTIONS (4)
  - Metastases to liver [None]
  - Jaundice [None]
  - Palmar-plantar erythrodysaesthesia syndrome [None]
  - Metastases to lung [None]
